APPROVED DRUG PRODUCT: RESTASIS MULTIDOSE
Active Ingredient: CYCLOSPORINE
Strength: 0.05%
Dosage Form/Route: EMULSION;OPHTHALMIC
Application: N050790 | Product #002
Applicant: ABBVIE INC
Approved: Oct 27, 2016 | RLD: Yes | RS: Yes | Type: RX

PATENTS:
Patent 8292129 | Expires: Feb 25, 2031
Patent 9676525 | Expires: Feb 7, 2034
Patent 9669974 | Expires: May 11, 2034
Patent 8561859 | Expires: Apr 16, 2032